FAERS Safety Report 25537778 (Version 4)
Quarter: 2025Q3

REPORT INFORMATION
  Report Type: Spontaneous
  Country: EU (occurrence: EU)
  Receive Date: 20250710
  Receipt Date: 20250731
  Transmission Date: 20251021
  Serious: Yes (Hospitalization, Disabling, Other)
  Sender: SANDOZ
  Company Number: EU-ASTELLAS-2025-AER-031490

PATIENT
  Age: 55 Year
  Sex: Male

DRUGS (16)
  1. MYCOPHENOLATE MOFETIL [Suspect]
     Active Substance: MYCOPHENOLATE MOFETIL
     Indication: Renal transplant
     Route: 065
     Dates: start: 2013
  2. MYCOPHENOLATE MOFETIL [Suspect]
     Active Substance: MYCOPHENOLATE MOFETIL
     Indication: Immunosuppressant drug therapy
  3. MYCOPHENOLATE MOFETIL [Suspect]
     Active Substance: MYCOPHENOLATE MOFETIL
     Indication: Immunosuppression
  4. MYCOPHENOLATE MOFETIL [Suspect]
     Active Substance: MYCOPHENOLATE MOFETIL
     Indication: Prophylaxis against transplant rejection
  5. PREDNISOLONE [Suspect]
     Active Substance: PREDNISOLONE
     Indication: Prophylaxis against transplant rejection
     Route: 065
     Dates: start: 2013
  6. PREDNISOLONE [Suspect]
     Active Substance: PREDNISOLONE
     Indication: Renal transplant
     Route: 065
     Dates: start: 2012
  7. PREDNISOLONE [Suspect]
     Active Substance: PREDNISOLONE
     Indication: Immunosuppressant drug therapy
  8. PREDNISOLONE [Suspect]
     Active Substance: PREDNISOLONE
     Indication: Immunosuppression
  9. PREDNISOLONE [Suspect]
     Active Substance: PREDNISOLONE
     Indication: Product use in unapproved indication
  10. TACROLIMUS [Suspect]
     Active Substance: TACROLIMUS
     Indication: Renal transplant
     Route: 065
     Dates: start: 2013
  11. TACROLIMUS [Suspect]
     Active Substance: TACROLIMUS
     Indication: Immunosuppressant drug therapy
  12. TACROLIMUS [Suspect]
     Active Substance: TACROLIMUS
     Indication: Immunosuppression
  13. TACROLIMUS [Suspect]
     Active Substance: TACROLIMUS
     Indication: Prophylaxis against transplant rejection
  14. DOXORUBICIN [Concomitant]
     Active Substance: DOXORUBICIN
     Indication: Neoplasm
     Route: 065
  15. PACLITAXEL [Concomitant]
     Active Substance: PACLITAXEL
     Indication: Neoplasm
     Route: 065
  16. PACLITAXEL [Concomitant]
     Active Substance: PACLITAXEL
     Indication: Neoplasm
     Route: 065

REACTIONS (17)
  - Neoplasm malignant [Unknown]
  - Pathological fracture [Not Recovered/Not Resolved]
  - Metastasis [Unknown]
  - Angiosarcoma [Unknown]
  - Metastases to skin [Not Recovered/Not Resolved]
  - Metastases to bone [Not Recovered/Not Resolved]
  - Skin angiosarcoma [Not Recovered/Not Resolved]
  - Angiosarcoma recurrent [Not Recovered/Not Resolved]
  - Angiosarcoma metastatic [Not Recovered/Not Resolved]
  - Neoplasm progression [Not Recovered/Not Resolved]
  - Patella fracture [Not Recovered/Not Resolved]
  - Off label use [Unknown]
  - Resorption bone increased [Not Recovered/Not Resolved]
  - Wound [Not Recovered/Not Resolved]
  - General physical health deterioration [Not Recovered/Not Resolved]
  - Disease progression [Not Recovered/Not Resolved]
  - Disability [Unknown]

NARRATIVE: CASE EVENT DATE: 20220101
